FAERS Safety Report 6341529-9 (Version None)
Quarter: 2009Q3

REPORT INFORMATION
  Report Type: 
  Country: None (occurrence: None)
  Receive Date: 20090904
  Receipt Date: 20090826
  Transmission Date: 20100115
  Serious: Yes (Hospitalization)
  Sender: FDA-Public Use
  Company Number: FR-MERCK-0908FRA00047

PATIENT
  Age: 95 Year
  Sex: Female

DRUGS (15)
  1. PRIMAXIN [Suspect]
     Route: 042
     Dates: start: 20080623, end: 20080628
  2. ENOXAPARIN SODIUM [Suspect]
     Indication: PHLEBITIS
     Route: 058
     Dates: start: 20080522, end: 20080623
  3. FLUINDIONE [Suspect]
     Indication: PHLEBITIS
     Route: 048
     Dates: start: 20080617, end: 20080625
  4. LEVOTHYROXINE SODIUM [Concomitant]
     Route: 048
  5. HYDROCHLOROTHIAZIDE [Concomitant]
     Route: 048
  6. COLCHICINE [Concomitant]
     Indication: HYPERURICAEMIA
     Route: 048
  7. ESOMEPRAZOLE MAGNESIUM [Concomitant]
     Route: 048
  8. ALLOPURINOL [Concomitant]
     Indication: HYPERURICAEMIA
     Route: 048
  9. BETAMETHASONE AND DEXCHLORPHENIRAMINE MALEATE [Concomitant]
     Route: 048
  10. POLYETHYLENE GLYCOL 3350 AND POTASSIUM CHLORIDE AND SODIUM BICARBONATE [Concomitant]
     Route: 065
  11. NITROGLYCERIN [Concomitant]
     Route: 065
  12. VERAPAMIL HYDROCHLORIDE [Concomitant]
     Route: 065
  13. DONEPEZIL HYDROCHLORIDE [Concomitant]
     Route: 065
  14. FLUTICASONE PROPIONATE AND SALMETEROL XINAFOATE [Concomitant]
     Route: 065
  15. MORPHINE SULFATE [Concomitant]
     Route: 065

REACTIONS (1)
  - HAEMATOMA [None]
